FAERS Safety Report 21788739 (Version 6)
Quarter: 2023Q2

REPORT INFORMATION
  Report Type: Spontaneous
  Country: US (occurrence: US)
  Receive Date: 20221228
  Receipt Date: 20230417
  Transmission Date: 20230722
  Serious: No
  Sender: FDA-Public Use
  Company Number: US-PFIZER INC-PV202200129616

PATIENT
  Age: 86 Year
  Sex: Female

DRUGS (2)
  1. EUCRISA [Suspect]
     Active Substance: CRISABOROLE
     Indication: Prophylaxis
     Dosage: UNK, DAILY
     Route: 061
  2. EUCRISA [Suspect]
     Active Substance: CRISABOROLE
     Indication: Skin disorder
     Dosage: UNK, AS NEEDED (APPLY TWICE DAILY AS NEEDED FOR FLARES)

REACTIONS (6)
  - Rash [Unknown]
  - Memory impairment [Unknown]
  - Gait disturbance [Unknown]
  - Frustration tolerance decreased [Unknown]
  - Off label use [Unknown]
  - Drug effective for unapproved indication [Unknown]
